FAERS Safety Report 7883403-2 (Version None)
Quarter: 2011Q4

REPORT INFORMATION
  Report Type: 
  Country: None (occurrence: None)
  Receive Date: 20111102
  Receipt Date: 20111028
  Transmission Date: 20120403
  Serious: No
  Sender: FDA-Public Use
  Company Number: US-B.I. PHARMACEUTICALS,INC./RIDGEFIELD-2011-BP-21153BP

PATIENT
  Sex: Female
  Weight: 78.93 kg

DRUGS (10)
  1. GABAPENTIN [Concomitant]
     Route: 048
  2. CARDIZEM [Concomitant]
     Indication: ATRIAL FIBRILLATION
     Route: 048
  3. PRADAXA [Suspect]
     Indication: ATRIAL FIBRILLATION
     Dosage: 300 MG
     Route: 048
     Dates: end: 20110830
  4. AMIODARONE HCL [Concomitant]
     Indication: ATRIAL FIBRILLATION
     Route: 048
  5. CALCIUM [Concomitant]
  6. FLAXSEED OIL [Concomitant]
     Route: 048
  7. GLUCOSAMINE CHONDROITIN [Concomitant]
  8. FLINTSTONES PLUS IRON [Concomitant]
  9. ALEVE [Concomitant]
  10. FISH OIL [Concomitant]

REACTIONS (6)
  - CARDIOVERSION [None]
  - RASH MACULO-PAPULAR [None]
  - NEUROPATHY PERIPHERAL [None]
  - HYPERSENSITIVITY [None]
  - PAIN [None]
  - RASH [None]
